FAERS Safety Report 8111290-6 (Version None)
Quarter: 2012Q1

REPORT INFORMATION
  Report Type: 
  Country: None (occurrence: None)
  Receive Date: 20120203
  Receipt Date: 20110810
  Transmission Date: 20120608
  Serious: Yes (Other)
  Sender: FDA-Public Use
  Company Number: US-GLAXOSMITHKLINE-A0940380A

PATIENT
  Age: 41 Year
  Sex: Female

DRUGS (3)
  1. DILANTIN [Concomitant]
  2. TOPIRAMATE [Concomitant]
  3. LAMOTRIGINE [Suspect]
     Indication: CONVULSION
     Route: 048
     Dates: start: 20110809

REACTIONS (1)
  - SEIZURE CLUSTER [None]
